FAERS Safety Report 6499891-2 (Version None)
Quarter: 2009Q4

REPORT INFORMATION
  Report Type: 
  Country: None (occurrence: None)
  Receive Date: 20091214
  Receipt Date: 20091214
  Transmission Date: 20100525
  Serious: No
  Sender: FDA-Public Use
  Company Number: None

PATIENT
  Age: 60 Year
  Sex: Female
  Weight: 64.4108 kg

DRUGS (1)
  1. COLD REMEDY NASAL GEL [Suspect]
     Dosage: SPORADIC    ABOUT A YEAR AGO-JUN2009
     Route: 045
     Dates: end: 20090601

REACTIONS (1)
  - ANOSMIA [None]
